FAERS Safety Report 5195544-1 (Version None)
Quarter: 2006Q4

REPORT INFORMATION
  Report Type: 
  Country: None (occurrence: None)
  Receive Date: 20061222
  Receipt Date: 20061222
  Transmission Date: 20070319
  Serious: Yes (Hospitalization)
  Sender: FDA-Public Use
  Company Number: None

PATIENT
  Age: 17 Year
  Sex: Female
  Weight: 68 kg

DRUGS (1)
  1. HYDROMORPHONE HCL [Suspect]
     Indication: ABDOMINAL PAIN
     Dosage: 2MG ONCE IV
     Route: 042
     Dates: start: 20060713

REACTIONS (1)
  - RASH PRURITIC [None]
